FAERS Safety Report 11512493 (Version 2)
Quarter: 2015Q4

REPORT INFORMATION
  Report Type: Report from Study
  Country: CO (occurrence: CO)
  Receive Date: 20150916
  Receipt Date: 20151026
  Transmission Date: 20160304
  Serious: Yes (Hospitalization)
  Sender: FDA-Public Use
  Company Number: PHHY2015CO111278

PATIENT
  Sex: Male

DRUGS (1)
  1. EXJADE [Suspect]
     Active Substance: DEFERASIROX
     Indication: IRON OVERLOAD
     Dosage: 500 MG, QD
     Route: 048
     Dates: start: 20150528, end: 20151013

REACTIONS (1)
  - Unevaluable event [Unknown]
